FAERS Safety Report 6211070-2 (Version None)
Quarter: 2009Q2

REPORT INFORMATION
  Report Type: 
  Country: None (occurrence: None)
  Receive Date: 20090602
  Receipt Date: 20090527
  Transmission Date: 20091009
  Serious: Yes (Other)
  Sender: FDA-Public Use
  Company Number: US-BAYER-200918826NA

PATIENT
  Age: 72 Year
  Sex: Female

DRUGS (6)
  1. CIPRO [Suspect]
     Indication: URINARY TRACT INFECTION
     Dosage: TOTAL DAILY DOSE: 8 DF
     Route: 048
     Dates: start: 20081201, end: 20081201
  2. CIPRO [Suspect]
     Dosage: TOTAL DAILY DOSE: 250 MG  UNIT DOSE: 250 MG
     Dates: start: 20090119, end: 20090122
  3. CIPRO [Suspect]
     Indication: INFECTION
     Route: 042
     Dates: start: 20081201
  4. LISINOPRIL [Concomitant]
  5. CLINDAMYCIN [Concomitant]
     Route: 042
     Dates: start: 20081201, end: 20081203
  6. CLINDAMYCIN [Concomitant]
     Dates: start: 20081203, end: 20081213

REACTIONS (3)
  - JOINT INJURY [None]
  - MENISCUS LESION [None]
  - TENDON DISORDER [None]
